FAERS Safety Report 5872204-2 (Version None)
Quarter: 2008Q3

REPORT INFORMATION
  Report Type: 
  Country: None (occurrence: None)
  Receive Date: 20080905
  Receipt Date: 20080901
  Transmission Date: 20090109
  Serious: Yes (Other)
  Sender: FDA-Public Use
  Company Number: US-BOEHRINGER INGELHEIM GMBH, GERMANY-2008-BP-13700PF

PATIENT
  Age: 60 Year
  Sex: Male
  Weight: 86 kg

DRUGS (7)
  1. SPIRIVA [Suspect]
     Indication: RESPIRATORY DISORDER
     Route: 055
     Dates: start: 20080825, end: 20080830
  2. CHANTIX [Suspect]
     Indication: SMOKING CESSATION THERAPY
     Dates: start: 20080825
  3. ADVAIR DISKUS 100/50 [Suspect]
     Indication: RESPIRATORY DISORDER
     Dates: start: 20080825, end: 20080830
  4. ASPIRIN [Concomitant]
  5. METOPROLOL TARTRATE [Concomitant]
     Indication: HYPERTENSION
  6. HYZAAR [Concomitant]
     Indication: HYPERTENSION
  7. CENTRUM VITAMINS [Concomitant]

REACTIONS (3)
  - PARAESTHESIA ORAL [None]
  - SLEEP DISORDER [None]
  - SWOLLEN TONGUE [None]
